FAERS Safety Report 9380110 (Version 1)
Quarter: 2013Q3

REPORT INFORMATION
  Report Type: Spontaneous
  Country: US (occurrence: None)
  Receive Date: 20130701
  Receipt Date: 20130701
  Transmission Date: 20140515
  Serious: Yes (Disabling)
  Sender: FDA-Public Use
  Company Number: None

PATIENT
  Age: 47 Year
  Sex: Male
  Weight: 74.84 kg

DRUGS (2)
  1. LEVOFLOXACIN [Suspect]
     Indication: EPIDIDYMITIS
     Dosage: 500MG 1 PILL PER DAY BY MOUTH
     Route: 048
     Dates: start: 20130516, end: 20130524
  2. ARMOUR THYROID [Concomitant]

REACTIONS (8)
  - Tendon pain [None]
  - Myalgia [None]
  - Muscle tightness [None]
  - Neuropathy peripheral [None]
  - Fatigue [None]
  - Night sweats [None]
  - Tinnitus [None]
  - Tendon disorder [None]
